FAERS Safety Report 16690064 (Version 1)
Quarter: 2019Q3

REPORT INFORMATION
  Report Type: Report from Study
  Country: BR (occurrence: BR)
  Receive Date: 20190809
  Receipt Date: 20190809
  Transmission Date: 20191004
  Serious: Yes (Other)
  Sender: FDA-Public Use
  Company Number: PHHY2019BR169772

PATIENT
  Age: 83 Year
  Sex: Male

DRUGS (2)
  1. IMATINIB MESILATE [Suspect]
     Active Substance: IMATINIB MESYLATE
     Indication: ACUTE MYELOID LEUKAEMIA
     Dosage: 400 MG USED FOR 2 MONTHS
     Route: 065
  2. TASIGNA [Suspect]
     Active Substance: NILOTINIB
     Indication: ACUTE MYELOID LEUKAEMIA
     Dosage: 2 DF, Q12H
     Route: 065
     Dates: start: 20190704

REACTIONS (20)
  - Myalgia [Recovering/Resolving]
  - Diarrhoea [Recovered/Resolved]
  - Paraesthesia [Unknown]
  - Pain [Recovering/Resolving]
  - Malignant neoplasm progression [Unknown]
  - Syncope [Not Recovered/Not Resolved]
  - Chest pain [Recovering/Resolving]
  - Asthenia [Not Recovered/Not Resolved]
  - Dizziness [Not Recovered/Not Resolved]
  - Viral infection [Unknown]
  - Swelling [Unknown]
  - Pain in extremity [Recovering/Resolving]
  - Insomnia [Not Recovered/Not Resolved]
  - Acute myeloid leukaemia [Unknown]
  - Chest discomfort [Unknown]
  - Back pain [Recovering/Resolving]
  - Product use in unapproved indication [Unknown]
  - Headache [Recovering/Resolving]
  - Fatigue [Not Recovered/Not Resolved]
  - Cough [Unknown]

NARRATIVE: CASE EVENT DATE: 20190704
